FAERS Safety Report 9088068 (Version 1)
Quarter: 2013Q1

REPORT INFORMATION
  Report Type: Spontaneous
  Country: US (occurrence: US)
  Receive Date: 20130201
  Receipt Date: 20130201
  Transmission Date: 20140127
  Serious: No
  Sender: FDA-Public Use
  Company Number: US-009507513-1301USA012066

PATIENT
  Age: 92 None
  Sex: Male
  Weight: 54.42 kg

DRUGS (2)
  1. MIRALAX [Suspect]
     Indication: PRODUCT USED FOR UNKNOWN INDICATION
     Dosage: 8.5 G, UNKNOWN
     Route: 048
  2. MIRALAX [Suspect]
     Indication: MEDICAL OBSERVATION
     Dosage: 17 G, QD
     Route: 048
     Dates: start: 20121022, end: 20121030

REACTIONS (2)
  - Abnormal faeces [Recovered/Resolved]
  - Underdose [Unknown]
